FAERS Safety Report 6001656-2 (Version None)
Quarter: 2008Q4

REPORT INFORMATION
  Report Type: 
  Country: None (occurrence: None)
  Receive Date: 20081215
  Receipt Date: 20081211
  Transmission Date: 20090506
  Serious: Yes (Hospitalization)
  Sender: FDA-Public Use
  Company Number: US-ROXANE LABORATORIES, INC.-2008-RO-00406RO

PATIENT
  Age: 68 Year
  Sex: Male

DRUGS (5)
  1. AZATHIOPRINE [Suspect]
     Indication: MYASTHENIA GRAVIS
     Dosage: 50MG
  2. PREDNISONE TAB [Suspect]
     Indication: MYASTHENIA GRAVIS
     Dosage: 30MG
  3. PREDNISONE TAB [Suspect]
     Dosage: 40MG
  4. PREDNISONE TAB [Suspect]
  5. PYRIDOSTIGMINE BROMIDE [Suspect]
     Indication: MYASTHENIA GRAVIS
     Dosage: 180MG

REACTIONS (1)
  - ACUTE FEBRILE NEUTROPHILIC DERMATOSIS [None]
